FAERS Safety Report 14576976 (Version 1)
Quarter: 2018Q1

REPORT INFORMATION
  Report Type: Spontaneous
  Country: US (occurrence: US)
  Receive Date: 20180225
  Receipt Date: 20180225
  Transmission Date: 20180509
  Serious: Yes (Other)
  Sender: FDA-Public Use
  Company Number: None

PATIENT
  Sex: Male
  Weight: 90 kg

DRUGS (6)
  1. PROAIR HFA ALBUTEROL [Concomitant]
  2. VISINE [Concomitant]
     Active Substance: TETRAHYDROZOLINE HYDROCHLORIDE
  3. LISINOPRIL. [Concomitant]
     Active Substance: LISINOPRIL
  4. AFRIN [Concomitant]
     Active Substance: OXYMETAZOLINE
  5. BENADRYL [Concomitant]
     Active Substance: DIPHENHYDRAMINE HYDROCHLORIDE
  6. LEVOFLOXACIN. [Suspect]
     Active Substance: LEVOFLOXACIN
     Indication: PNEUMONIA
     Dosage: ?          QUANTITY:5 TABLET(S);?
     Route: 048
     Dates: start: 20180208, end: 20180213

REACTIONS (5)
  - Tinnitus [None]
  - Insomnia [None]
  - Tendon disorder [None]
  - Aortic aneurysm [None]
  - Feeling jittery [None]

NARRATIVE: CASE EVENT DATE: 20180213
